FAERS Safety Report 7951113-9 (Version None)
Quarter: 2011Q4

REPORT INFORMATION
  Report Type: 
  Country: None (occurrence: None)
  Receive Date: 20111123
  Receipt Date: 20111114
  Transmission Date: 20120403
  Serious: Yes (Other)
  Sender: FDA-Public Use
  Company Number: 2011-3780

PATIENT
  Age: 26 Year
  Sex: Female
  Weight: 52.2 kg

DRUGS (7)
  1. SUNSCREEN WITH SPF 46 (SUNSCREEN) [Concomitant]
  2. DYSPORT [Suspect]
     Indication: OFF LABEL USE
     Dosage: 30 UNITS (30 UNITS, SINGLE CYCLE)
     Dates: start: 20110913, end: 20110913
  3. DYSPORT [Suspect]
     Indication: SKIN WRINKLING
     Dosage: 30 UNITS (30 UNITS, SINGLE CYCLE)
     Dates: start: 20110913, end: 20110913
  4. MULTIPLE VITAMINS (MULTIPLE VITAMINS) [Concomitant]
  5. OMEGA 3-6-0 (CARBINOXAMINE MALEATE) [Concomitant]
  6. RETIN-A [Concomitant]
  7. OBAGI SKIN CARE (ALL OTHER NON-THERAPEUTIC PRODUCTS) [Concomitant]

REACTIONS (6)
  - HEART RATE DECREASED [None]
  - CONVULSION [None]
  - SWOLLEN TONGUE [None]
  - REFUSAL OF TREATMENT BY PATIENT [None]
  - RESPIRATORY RATE DECREASED [None]
  - BLOOD PRESSURE DECREASED [None]
